FAERS Safety Report 9539590 (Version 1)
Quarter: 2013Q2

REPORT INFORMATION
  Report Type: Spontaneous
  Country: US (occurrence: None)
  Receive Date: 20130507
  Receipt Date: 20130507
  Transmission Date: 20140414
  Serious: No
  Sender: FDA-Public Use
  Company Number: PHEH2013US003486

PATIENT
  Age: 35 Year
  Sex: Male

DRUGS (4)
  1. AFINITOR [Suspect]
     Indication: TUBEROUS SCLEROSIS
     Route: 048
     Dates: start: 20120912
  2. LOSARTAN [Concomitant]
  3. PHENOBARBITAL [Concomitant]
  4. LEVETIRACETAM [Concomitant]

REACTIONS (2)
  - Nasopharyngitis [None]
  - Sinusitis [None]
